FAERS Safety Report 8425298-4 (Version None)
Quarter: 2012Q2

REPORT INFORMATION
  Report Type: 
  Country: None (occurrence: None)
  Receive Date: 20120611
  Receipt Date: 20120601
  Transmission Date: 20120825
  Serious: Yes (Other)
  Sender: FDA-Public Use
  Company Number: US-BAYER-2012-055407

PATIENT
  Age: 39 Year
  Sex: Female

DRUGS (3)
  1. LOTREL [Concomitant]
     Indication: HYPERTENSION
     Dosage: 10/20 MG
     Route: 048
     Dates: start: 20050310
  2. YASMIN [Suspect]
     Dosage: UNK
  3. DYAZIDE [Concomitant]
     Indication: HYPERTENSION
     Dosage: 37.5/25
     Route: 048
     Dates: start: 20050228

REACTIONS (1)
  - DEEP VEIN THROMBOSIS [None]
